FAERS Safety Report 10520913 (Version 5)
Quarter: 2015Q1

REPORT INFORMATION
  Report Type: Report from Study
  Country: US (occurrence: US)
  Receive Date: 20141016
  Receipt Date: 20150326
  Transmission Date: 20150720
  Serious: Yes (Hospitalization)
  Sender: FDA-Public Use
  Company Number: US-AMGEN-USACT2014078656

PATIENT
  Age: 73 Year
  Sex: Male
  Weight: 109.7 kg

DRUGS (4)
  1. ZOFRAN                             /00955301/ [Concomitant]
     Active Substance: ONDANSETRON HYDROCHLORIDE
     Dosage: 8 MG, UNK
     Route: 048
  2. KEFLEX [Concomitant]
     Active Substance: CEPHALEXIN
     Dosage: 500 MG, UNK
     Route: 048
  3. ROMIPLOSTIM [Suspect]
     Active Substance: ROMIPLOSTIM
     Indication: THROMBOCYTOPENIA
     Dosage: 225 MUG, QWK
     Route: 058
     Dates: start: 20140828
  4. OXCARBAZEPINE. [Concomitant]
     Active Substance: OXCARBAZEPINE
     Dosage: 150 MG, UNK
     Route: 048

REACTIONS (7)
  - Jaundice [Recovering/Resolving]
  - Aphasia [Unknown]
  - Chromaturia [Recovering/Resolving]
  - Ascites [Recovering/Resolving]
  - Abdominal pain [Recovering/Resolving]
  - Brain mass [Unknown]
  - Status epilepticus [Unknown]

NARRATIVE: CASE EVENT DATE: 20140317
